FAERS Safety Report 9045619 (Version 1)
Quarter: 2013Q1

REPORT INFORMATION
  Report Type: Report from Study
  Country: US (occurrence: US)
  Receive Date: 20130131
  Receipt Date: 20130131
  Transmission Date: 20140127
  Serious: No
  Sender: FDA-Public Use
  Company Number: US-ABBOTT-12P-163-1010697-00

PATIENT
  Age: 63 Year
  Sex: Female

DRUGS (14)
  1. HUMIRA [Suspect]
     Indication: PSORIASIS
     Route: 058
     Dates: start: 2008, end: 201204
  2. HUMIRA [Suspect]
     Route: 058
     Dates: start: 20121110
  3. COZAAR [Concomitant]
     Indication: PRODUCT USED FOR UNKNOWN INDICATION
  4. COZAAR [Concomitant]
     Indication: PRODUCT USED FOR UNKNOWN INDICATION
  5. SPIRONOLACTONE/HCTZ 25/25 MG [Concomitant]
     Indication: PRODUCT USED FOR UNKNOWN INDICATION
  6. SPIRONOLACTONE/HCTZ 25/25 MG [Concomitant]
     Indication: PRODUCT USED FOR UNKNOWN INDICATION
  7. POTASSIUM [Concomitant]
     Indication: PRODUCT USED FOR UNKNOWN INDICATION
  8. POTASSIUM [Concomitant]
     Indication: PRODUCT USED FOR UNKNOWN INDICATION
  9. VITAMINS [Concomitant]
     Indication: PRODUCT USED FOR UNKNOWN INDICATION
  10. VITAMINS [Concomitant]
     Indication: PRODUCT USED FOR UNKNOWN INDICATION
  11. ZYRTEC [Concomitant]
     Indication: HYPERSENSITIVITY
     Dosage: AT PM
  12. ZYRTEC [Concomitant]
     Indication: PRODUCT USED FOR UNKNOWN INDICATION
  13. AMBIEN [Concomitant]
     Indication: INSOMNIA
     Dosage: 1/2 TAB AS NEEDED
  14. FEMHRT [Concomitant]
     Indication: HORMONE REPLACEMENT THERAPY

REACTIONS (2)
  - Tuberculin test positive [Recovered/Resolved]
  - Tuberculin test positive [Recovered/Resolved]
